FAERS Safety Report 8266479-2 (Version None)
Quarter: 2012Q2

REPORT INFORMATION
  Report Type: 
  Country: None (occurrence: None)
  Receive Date: 20120406
  Receipt Date: 20120328
  Transmission Date: 20120825
  Serious: Yes (Other)
  Sender: FDA-Public Use
  Company Number: JP-ASTRAZENECA-2012SE10592

PATIENT
  Age: 41 Year
  Sex: Male

DRUGS (8)
  1. SOLU-MEDROL [Suspect]
     Route: 041
     Dates: start: 20111216, end: 20111216
  2. ONON [Concomitant]
     Route: 048
     Dates: start: 20111011
  3. PREDNISOLONE [Suspect]
     Route: 048
     Dates: start: 20111030, end: 20111220
  4. SOLU-MEDROL [Suspect]
     Route: 041
     Dates: start: 20111217, end: 20111217
  5. AZEPTIN [Concomitant]
     Route: 048
  6. SYMBICORT [Suspect]
     Indication: ASTHMA
     Dosage: 1 DF, TWO TIMES A DAY
     Route: 055
     Dates: start: 20110731
  7. PREDNISOLONE [Suspect]
     Route: 048
     Dates: start: 20111011, end: 20111022
  8. PREDNISOLONE [Suspect]
     Route: 048
     Dates: start: 20111023, end: 20111029

REACTIONS (2)
  - DIABETIC KETOACIDOSIS [None]
  - DIABETES MELLITUS [None]
